FAERS Safety Report 9751688 (Version 2)
Quarter: 2014Q1

REPORT INFORMATION
  Report Type: Spontaneous
  Country: PL (occurrence: PL)
  Receive Date: 20131213
  Receipt Date: 20140204
  Transmission Date: 20141002
  Serious: Yes (Hospitalization, Other)
  Sender: FDA-Public Use
  Company Number: PL-AMGEN-POLSP2013087138

PATIENT
  Age: 58 Year
  Sex: Male
  Weight: 121 kg

DRUGS (5)
  1. ENBREL [Suspect]
     Indication: RHEUMATOID ARTHRITIS
     Dosage: 50 MG, QWK
     Route: 058
     Dates: start: 20130910, end: 20131105
  2. ENBREL [Suspect]
     Dosage: UNK
     Route: 065
  3. ENBREL [Suspect]
     Dosage: UNK
     Route: 065
  4. ENBREL [Suspect]
     Dosage: UNK
     Route: 065
  5. PALIN [Concomitant]
     Dosage: 2X2
     Dates: end: 20131027

REACTIONS (4)
  - Skin lesion [Unknown]
  - Scratch [Unknown]
  - Vasculitis [Recovering/Resolving]
  - Cellulitis [Unknown]
